FAERS Safety Report 6336565-2 (Version None)
Quarter: 2009Q3

REPORT INFORMATION
  Report Type: 
  Country: None (occurrence: None)
  Receive Date: 20090831
  Receipt Date: 20090831
  Transmission Date: 20100115
  Serious: Yes (Life-Threatening, Disabling, Other)
  Sender: FDA-Public Use
  Company Number: None

PATIENT
  Age: 35 Year
  Sex: Female
  Weight: 51.7101 kg

DRUGS (3)
  1. AMPHETAMINE SALT TABLETS 20 MG TEVA PHARMACEUTICALS [Suspect]
     Indication: APATHY
     Dosage: 20 MG 1 AM/ 1 P.M PO
     Route: 048
     Dates: start: 20090703, end: 20090829
  2. AMPHETAMINE SALT TABLETS 20 MG TEVA PHARMACEUTICALS [Suspect]
     Indication: DEPRESSION
     Dosage: 20 MG 1 AM/ 1 P.M PO
     Route: 048
     Dates: start: 20090703, end: 20090829
  3. ATIVAN [Concomitant]

REACTIONS (19)
  - ANXIETY [None]
  - DECREASED APPETITE [None]
  - DIARRHOEA [None]
  - DIZZINESS POSTURAL [None]
  - DRY MOUTH [None]
  - FEAR [None]
  - GASTROOESOPHAGEAL REFLUX DISEASE [None]
  - HEADACHE [None]
  - HYPERHIDROSIS [None]
  - HYPERTENSION [None]
  - INSOMNIA [None]
  - MANIA [None]
  - NAUSEA [None]
  - NO THERAPEUTIC RESPONSE [None]
  - PALPITATIONS [None]
  - RESTLESSNESS [None]
  - SUICIDAL IDEATION [None]
  - TACHYCARDIA [None]
  - TREMOR [None]
